FAERS Safety Report 6103239-2 (Version None)
Quarter: 2009Q1

REPORT INFORMATION
  Report Type: 
  Country: None (occurrence: None)
  Receive Date: 20090227
  Receipt Date: 20090216
  Transmission Date: 20090719
  Serious: Yes (Hospitalization)
  Sender: FDA-Public Use
  Company Number: 005707

PATIENT
  Age: 17 Year
  Sex: Female

DRUGS (6)
  1. BUSULFEX [Suspect]
     Indication: STEM CELL TRANSPLANT
     Dosage: 25 MG, QID,  INTRAVENOUS
     Route: 042
     Dates: start: 20070405, end: 20070406
  2. FLUDARABINE PHOSPHATE [Concomitant]
  3. PHENYTOIN [Concomitant]
  4. LYMPHOGLOBULINE (ANTITHYMOCYTE IMMUNOGLOBULIN) [Concomitant]
  5. FILGRASTIM (FILGRASTIM) [Concomitant]
  6. CYCLOSPORINE [Concomitant]

REACTIONS (5)
  - ACUTE GRAFT VERSUS HOST DISEASE [None]
  - BONE MARROW TRANSPLANT REJECTION [None]
  - CORD BLOOD TRANSPLANT THERAPY [None]
  - HEPATIC FUNCTION ABNORMAL [None]
  - STOMATITIS [None]
